FAERS Safety Report 25919008 (Version 1)
Quarter: 2025Q4

REPORT INFORMATION
  Report Type: Spontaneous
  Country: US (occurrence: None)
  Receive Date: 20251011
  Receipt Date: 20251011
  Transmission Date: 20260117
  Serious: Yes (Hospitalization)
  Sender: FDA-CTU
  Company Number: None

PATIENT
  Age: 40 Year
  Sex: Female
  Weight: 79.8 kg

DRUGS (1)
  1. XELODA [Suspect]
     Active Substance: CAPECITABINE
     Dates: end: 20250916

REACTIONS (4)
  - Decreased appetite [None]
  - Abdominal pain [None]
  - Malnutrition [None]
  - Weight decreased [None]

NARRATIVE: CASE EVENT DATE: 20251001
